FAERS Safety Report 10353583 (Version 1)
Quarter: 2014Q3

REPORT INFORMATION
  Report Type: Spontaneous
  Country: US (occurrence: US)
  Receive Date: 20140731
  Receipt Date: 20140731
  Transmission Date: 20150326
  Serious: No
  Sender: FDA-Public Use
  Company Number: US-009507513-1407USA013489

PATIENT
  Age: 19 Year
  Sex: Female

DRUGS (1)
  1. NUVARING [Suspect]
     Active Substance: ETHINYL ESTRADIOL\ETONOGESTREL
     Indication: CONTRACEPTION
     Dosage: 1 DF, UNK
     Dates: start: 201402

REACTIONS (4)
  - Product quality issue [Unknown]
  - Vaginal haemorrhage [Unknown]
  - Poor quality drug administered [Unknown]
  - Metrorrhagia [Unknown]

NARRATIVE: CASE EVENT DATE: 201406
